FAERS Safety Report 6894694-9 (Version None)
Quarter: 2010Q3

REPORT INFORMATION
  Report Type: 
  Country: None (occurrence: None)
  Receive Date: 20100728
  Receipt Date: 20100719
  Transmission Date: 20110219
  Serious: Yes (Other)
  Sender: FDA-Public Use
  Company Number: 2010MA001015

PATIENT
  Age: 80 Year
  Sex: Female

DRUGS (8)
  1. ACETAMINOPHEN W/ CODEINE PHOSPHATE [Suspect]
     Indication: OSTEOARTHRITIS
     Dosage: PO
     Route: 048
     Dates: start: 20091202
  2. CALFOVIT D3 [Concomitant]
  3. ESOMEPRAZOLE MAGNESIUM [Concomitant]
  4. BISACODYL [Concomitant]
  5. IBUPROFEN [Concomitant]
  6. AMOXICILLIN [Concomitant]
  7. METRONIDAZOLE [Concomitant]
  8. ACETAMINOPHEN AND CODEINE PHOSPHATE [Concomitant]

REACTIONS (3)
  - ATRIAL FIBRILLATION [None]
  - ATRIAL FLUTTER [None]
  - BUNDLE BRANCH BLOCK LEFT [None]
